FAERS Safety Report 13784042 (Version 3)
Quarter: 2018Q4

REPORT INFORMATION
  Report Type: Report from Study
  Country: JP (occurrence: JP)
  Receive Date: 20170724
  Receipt Date: 20181213
  Transmission Date: 20190204
  Serious: Yes (Death, Life-Threatening, Hospitalization, Other)
  Sender: FDA-Public Use
  Company Number: PHJP2017JP023495

PATIENT
  Age: 71 Year
  Sex: Male
  Weight: 52 kg

DRUGS (2)
  1. COSENTYX [Suspect]
     Active Substance: SECUKINUMAB
     Dosage: 300 MG, 4W
     Route: 058
     Dates: start: 20161116, end: 20161214
  2. COSENTYX [Suspect]
     Active Substance: SECUKINUMAB
     Indication: PSORIASIS
     Dosage: 300 MG, QW
     Route: 058
     Dates: start: 20160921, end: 20161019

REACTIONS (20)
  - Loss of consciousness [Fatal]
  - Abnormal behaviour [Fatal]
  - Glomerular filtration rate decreased [Fatal]
  - Haemoglobin decreased [Unknown]
  - Disorientation [Fatal]
  - Aphasia [Fatal]
  - Lymphocyte count decreased [Unknown]
  - Fall [Fatal]
  - Blood uric acid increased [Fatal]
  - Sensory loss [Fatal]
  - Dermatitis exfoliative generalised [Fatal]
  - Ischaemic cerebral infarction [Fatal]
  - Movement disorder [Fatal]
  - Pneumonia [Fatal]
  - Language disorder [Fatal]
  - Blood creatinine increased [Fatal]
  - Dysphagia [Fatal]
  - Gait disturbance [Fatal]
  - Renal failure [Fatal]
  - Condition aggravated [Unknown]

NARRATIVE: CASE EVENT DATE: 20170321
